FAERS Safety Report 21210357 (Version 1)
Quarter: 2022Q3

REPORT INFORMATION
  Report Type: Spontaneous
  Country: US (occurrence: None)
  Receive Date: 20220815
  Receipt Date: 20220815
  Transmission Date: 20221027
  Serious: No
  Sender: FDA-Public Use
  Company Number: 2022A264569

PATIENT
  Sex: Male
  Weight: 113.4 kg

DRUGS (1)
  1. SYMBICORT [Suspect]
     Active Substance: BUDESONIDE\FORMOTEROL FUMARATE DIHYDRATE
     Indication: Pulmonary fibrosis
     Dosage: 160/4.5 MCG,2 INHALATIONS, TWO TIMES A DAY
     Route: 055

REACTIONS (6)
  - Product dose omission issue [Unknown]
  - Lung disorder [Unknown]
  - Cardiac disorder [Unknown]
  - Renal disorder [Unknown]
  - Bladder disorder [Unknown]
  - Device malfunction [Unknown]
